FAERS Safety Report 4847357-5 (Version None)
Quarter: 2005Q4

REPORT INFORMATION
  Report Type: 
  Country: None (occurrence: None)
  Receive Date: 20051207
  Receipt Date: 20040721
  Transmission Date: 20060501
  Serious: Yes (Hospitalization)
  Sender: FDA-Public Use
  Company Number: US-ROCHE-375202

PATIENT
  Age: 54 Year
  Sex: Female

DRUGS (15)
  1. PEGASYS [Suspect]
     Dosage: ROUTE REPORTED AS INJ.
     Route: 050
     Dates: start: 20030521, end: 20040615
  2. PEGASYS [Suspect]
     Route: 050
     Dates: start: 20041115, end: 20050515
  3. COPEGUS [Suspect]
     Route: 048
     Dates: start: 20030521
  4. COPEGUS [Suspect]
     Route: 048
     Dates: start: 20041115, end: 20050515
  5. ATENOLOL [Concomitant]
  6. ASPIRIN [Concomitant]
  7. BENADRYL [Concomitant]
  8. LEXAPRO [Concomitant]
  9. LACTINEX [Concomitant]
  10. LEVOFLOXACIN [Concomitant]
  11. SYNTHROID [Concomitant]
  12. METHADONE [Concomitant]
  13. VANCOMYCIN [Concomitant]
     Route: 042
  14. DILAUDID [Concomitant]
  15. LORTAB [Concomitant]

REACTIONS (8)
  - BLADDER DISTENSION [None]
  - CONFUSIONAL STATE [None]
  - GAIT DISTURBANCE [None]
  - HAEMATURIA [None]
  - PNEUMONIA [None]
  - RED BLOOD CELL COUNT DECREASED [None]
  - URINARY TRACT INFECTION [None]
  - WHITE BLOOD CELL COUNT DECREASED [None]
